FAERS Safety Report 8300456-8 (Version None)
Quarter: 2012Q2

REPORT INFORMATION
  Report Type: 
  Country: None (occurrence: None)
  Receive Date: 20120420
  Receipt Date: 20120406
  Transmission Date: 20120825
  Serious: Yes (Hospitalization)
  Sender: FDA-Public Use
  Company Number: DE-MYLANLABS-2012S1007507

PATIENT
  Age: 38 Year
  Sex: Female

DRUGS (4)
  1. PAROXETINE [Suspect]
     Route: 048
  2. SEROQUEL [Suspect]
     Route: 048
  3. PROMETHAZINE [Suspect]
     Route: 048
  4. LORAZEPAM [Suspect]
     Route: 048

REACTIONS (4)
  - TACHYCARDIA [None]
  - SOMNOLENCE [None]
  - VOMITING [None]
  - SUICIDE ATTEMPT [None]
